FAERS Safety Report 4997206-X (Version None)
Quarter: 2006Q2

REPORT INFORMATION
  Report Type: 
  Country: None (occurrence: None)
  Receive Date: 20060505
  Receipt Date: 20060505
  Transmission Date: 20061013
  Serious: No
  Sender: FDA-Public Use
  Company Number: None

PATIENT
  Sex: Female

DRUGS (8)
  1. ERBITUX [Suspect]
     Indication: ADENOCARCINOMA
     Dosage: 430MG ONCE WEEKLY IV DRIP
     Route: 041
     Dates: start: 20051005, end: 20060202
  2. FLUOROURACIL [Concomitant]
  3. LEUCOVORIN [Concomitant]
  4. OXALIPLATIN [Concomitant]
  5. DEXAMETHASONE TAB [Concomitant]
  6. DIPHENHYDRAMINE HCL [Concomitant]
  7. DOLASETRON [Concomitant]
  8. HYDROCORTISONE [Concomitant]

REACTIONS (4)
  - BACTERIAL INFECTION [None]
  - DERMATITIS ACNEIFORM [None]
  - FUNGAL INFECTION [None]
  - RASH PUSTULAR [None]
